FAERS Safety Report 10999985 (Version 3)
Quarter: 2015Q2

REPORT INFORMATION
  Report Type: Spontaneous
  Country: PT (occurrence: PT)
  Receive Date: 20150408
  Receipt Date: 20150511
  Transmission Date: 20150821
  Serious: Yes (Other)
  Sender: FDA-Public Use
  Company Number: PT-ASTELLAS-2015EU005835

PATIENT
  Age: 82 Year
  Sex: Male

DRUGS (8)
  1. BICALUTAMIDE. [Concomitant]
     Active Substance: BICALUTAMIDE
     Indication: PROSTATE CANCER
     Route: 048
     Dates: start: 2009, end: 2013
  2. TRIPTORELIN [Concomitant]
     Active Substance: TRIPTORELIN
     Indication: PROSTATE CANCER
     Dosage: UNK UNK, UNKNOWN FREQ.
     Route: 065
     Dates: start: 2009
  3. ACETYLSALICYLIC ACID [Concomitant]
     Active Substance: ASPIRIN
     Indication: ANTIPLATELET THERAPY
     Route: 048
  4. FUROSEMIDE. [Concomitant]
     Active Substance: FUROSEMIDE
     Indication: OEDEMA
     Route: 048
  5. DOCETAXEL. [Concomitant]
     Active Substance: DOCETAXEL
     Indication: PROSTATE CANCER
     Dosage: UNK UNK, CYCLIC
     Route: 042
     Dates: start: 201404, end: 201411
  6. PANTOPRAZOLE [Concomitant]
     Active Substance: PANTOPRAZOLE SODIUM
     Indication: GASTRIC DISORDER
     Route: 048
  7. XTANDI [Suspect]
     Active Substance: ENZALUTAMIDE
     Indication: PROSTATE CANCER
     Route: 048
     Dates: start: 20150313
  8. ZOLEDRONIC ACID [Concomitant]
     Active Substance: ZOLEDRONIC ACID
     Indication: METASTASES TO BONE
     Dosage: UNK UNK, UNKNOWN FREQ.
     Route: 065
     Dates: start: 2013, end: 201502

REACTIONS (1)
  - Neuropathy peripheral [Recovering/Resolving]
